FAERS Safety Report 4823417-X (Version None)
Quarter: 2005Q4

REPORT INFORMATION
  Report Type: 
  Country: None (occurrence: None)
  Receive Date: 20051107
  Receipt Date: 20051020
  Transmission Date: 20060501
  Serious: Yes (Life-Threatening, Hospitalization)
  Sender: FDA-Public Use
  Company Number: DSA_27315_2005

PATIENT
  Age: 32 Year
  Sex: Male

DRUGS (4)
  1. LORAZEPAM [Suspect]
     Dosage: 2.5 MG PO
     Route: 048
     Dates: start: 20050824, end: 20050824
  2. TEMESTA [Suspect]
     Dosage: 6 MG
     Dates: start: 20050823, end: 20050823
  3. HALDOL [Suspect]
     Dosage: 15 MG
     Dates: start: 20050823, end: 20050823
  4. COMBIVENT [Concomitant]

REACTIONS (4)
  - ATRIOVENTRICULAR BLOCK COMPLETE [None]
  - CONVULSION [None]
  - FALL [None]
  - SKIN LACERATION [None]
